FAERS Safety Report 17505487 (Version 3)
Quarter: 2020Q2

REPORT INFORMATION
  Report Type: Report from Study
  Country: US (occurrence: US)
  Receive Date: 20200306
  Receipt Date: 20200407
  Transmission Date: 20200713
  Serious: No
  Sender: FDA-Public Use
  Company Number: NVSC2020US063314

PATIENT
  Age: 72 Year
  Sex: Female

DRUGS (2)
  1. ENTRESTO [Suspect]
     Active Substance: SACUBITRIL\VALSARTAN
     Indication: CARDIAC FAILURE CHRONIC
     Dosage: 1 DF (24 MG SACUBITRIL, VALSARTAN 26 MG), BID
     Route: 048
     Dates: start: 20200226
  2. ENTRESTO [Suspect]
     Active Substance: SACUBITRIL\VALSARTAN
     Dosage: 24.26 MG
     Route: 048
     Dates: start: 202002

REACTIONS (3)
  - Muscle tightness [Unknown]
  - Swelling of eyelid [Unknown]
  - Salt craving [Unknown]

NARRATIVE: CASE EVENT DATE: 20200228
